FAERS Safety Report 9414394 (Version 3)
Quarter: 2013Q4

REPORT INFORMATION
  Report Type: Spontaneous
  Country: US (occurrence: US)
  Receive Date: 20130723
  Receipt Date: 20131209
  Transmission Date: 20140711
  Serious: Yes (Death)
  Sender: FDA-Public Use
  Company Number: US-GLAXOSMITHKLINE-A1034252A

PATIENT
  Age: 67 Year
  Sex: Male

DRUGS (1)
  1. VOTRIENT [Suspect]
     Indication: SOFT TISSUE CANCER
     Dosage: 400MG PER DAY
     Route: 065

REACTIONS (2)
  - Death [Fatal]
  - Adverse event [Not Recovered/Not Resolved]
